FAERS Safety Report 25057642 (Version 2)
Quarter: 2025Q2

REPORT INFORMATION
  Report Type: Spontaneous
  Country: US (occurrence: US)
  Receive Date: 20250310
  Receipt Date: 20250604
  Transmission Date: 20250717
  Serious: No
  Sender: ARS PHARMACEUTICALS OPERATIONS, INC.
  Company Number: US-ARS PHARMACEUTICALS OPERATIONS, INC.-2024ARP00011

PATIENT
  Sex: Male

DRUGS (1)
  1. NEFFY [Suspect]
     Active Substance: EPINEPHRINE
     Indication: Hypersensitivity
     Route: 045
     Dates: start: 20241113, end: 20241113

REACTIONS (3)
  - Secretion discharge [Recovering/Resolving]
  - Drug ineffective [Recovered/Resolved]
  - Underdose [Recovering/Resolving]

NARRATIVE: CASE EVENT DATE: 20241113
